FAERS Safety Report 9018151 (Version 1)
Quarter: 2013Q1

REPORT INFORMATION
  Report Type: Spontaneous
  Country: NL (occurrence: NL)
  Receive Date: 20130117
  Receipt Date: 20130117
  Transmission Date: 20140127
  Serious: Yes (Other)
  Sender: FDA-Public Use
  Company Number: NL-AMGEN-NLDSP2013003374

PATIENT
  Sex: Male

DRUGS (2)
  1. ENBREL [Suspect]
     Indication: ANKYLOSING SPONDYLITIS
     Dosage: 50 MG, WEEKLY (IN THE SUMMER)
     Dates: start: 20091001
  2. ENBREL [Suspect]
     Dosage: 50 MG, EVERY TWO WEEKS (IN THE WINTER)

REACTIONS (1)
  - Type 2 diabetes mellitus [Not Recovered/Not Resolved]
